FAERS Safety Report 13402487 (Version 1)
Quarter: 2017Q2

REPORT INFORMATION
  Report Type: Spontaneous
  Country: US (occurrence: US)
  Receive Date: 20170404
  Receipt Date: 20170404
  Transmission Date: 20170830
  Serious: Yes (Other)
  Sender: FDA-Public Use
  Company Number: US-BAYER-2017-064122

PATIENT

DRUGS (1)
  1. CLOROTRIMETON [Suspect]
     Active Substance: CHLORPHENIRAMINE MALEATE

REACTIONS (3)
  - Product use issue [Unknown]
  - Product label issue [Unknown]
  - Drug use disorder [None]
